FAERS Safety Report 4555892-2 (Version None)
Quarter: 2005Q1

REPORT INFORMATION
  Report Type: 
  Country: None (occurrence: None)
  Receive Date: 20050119
  Receipt Date: 20050114
  Transmission Date: 20050727
  Serious: Yes (Hospitalization)
  Sender: FDA-Public Use
  Company Number: FR-ROCHE-392500

PATIENT
  Age: 41 Year
  Sex: Female

DRUGS (3)
  1. VALIUM [Suspect]
     Indication: AGITATION
     Route: 065
  2. AUGMENTIN '125' [Concomitant]
     Indication: DRUG USE FOR UNKNOWN INDICATION
     Route: 065
  3. HALDOL [Concomitant]
     Indication: DRUG USE FOR UNKNOWN INDICATION
     Dosage: RECEIVED ONE AMPULE.
     Route: 065

REACTIONS (1)
  - ANGIONEUROTIC OEDEMA [None]
